FAERS Safety Report 16437942 (Version 1)
Quarter: 2019Q2

REPORT INFORMATION
  Report Type: Spontaneous
  Country: IE (occurrence: IE)
  Receive Date: 20190617
  Receipt Date: 20190617
  Transmission Date: 20190711
  Serious: Yes (Hospitalization, Other)
  Sender: FDA-Public Use
  Company Number: IE-PCCINC-2019-PEL-000181

PATIENT
  Age: 29 Year
  Sex: Male
  Weight: 90 kg

DRUGS (6)
  1. ISOFLURANE. [Suspect]
     Active Substance: ISOFLURANE
     Indication: MAINTENANCE OF ANAESTHESIA
     Dosage: UNK
     Route: 065
  2. METARAMINOL [Suspect]
     Active Substance: METARAMINOL
     Indication: PRODUCT USED FOR UNKNOWN INDICATION
     Dosage: UNK
     Route: 065
  3. FENTANYL. [Suspect]
     Active Substance: FENTANYL
     Indication: INDUCTION OF ANAESTHESIA
     Dosage: UNK
     Route: 065
  4. PANCURONIUM BROMIDE ABBOTT [Suspect]
     Active Substance: PANCURONIUM BROMIDE
     Indication: INDUCTION OF ANAESTHESIA
     Dosage: UNK
     Route: 065
  5. PROPOFOL. [Suspect]
     Active Substance: PROPOFOL
     Indication: ANAESTHESIA
     Dosage: UNK
     Route: 065
  6. SEVOFLURANE 100% INHALATION VAPOUR, LIQUID [Suspect]
     Active Substance: SEVOFLURANE
     Indication: INDUCTION OF ANAESTHESIA
     Dosage: UNK
     Route: 065

REACTIONS (7)
  - Respiratory acidosis [Recovering/Resolving]
  - Hyperthermia malignant [Recovering/Resolving]
  - Nephropathy toxic [Recovering/Resolving]
  - Hypotension [Recovering/Resolving]
  - Metabolic acidosis [Recovering/Resolving]
  - Shock [Recovering/Resolving]
  - Sinus tachycardia [Recovering/Resolving]
